FAERS Safety Report 7824675-X (Version None)
Quarter: 2011Q4

REPORT INFORMATION
  Report Type: 
  Country: None (occurrence: None)
  Receive Date: 20111019
  Receipt Date: 20111007
  Transmission Date: 20120403
  Serious: Yes (Other)
  Sender: FDA-Public Use
  Company Number: PHHY2011BR89342

PATIENT
  Sex: Male

DRUGS (7)
  1. LIPITOR [Concomitant]
     Dosage: 1 DF, A DAY
     Route: 048
     Dates: start: 20100315
  2. METOPROLOL SUCCINATE [Concomitant]
     Dosage: 100 MG, QD
     Route: 048
     Dates: start: 20100315
  3. DIOVAN HCT [Suspect]
     Indication: HYPERTENSION
     Dosage: 1 DF, QD (IN THE MORNING)
     Dates: start: 20100315
  4. ASPIRIN [Concomitant]
     Dosage: 2 DF, A DAY
     Route: 048
     Dates: start: 20100315
  5. CLOPIDOGREL BISULFATE [Concomitant]
     Dosage: 1 DF, QD
     Route: 048
     Dates: start: 20100315
  6. ROXFLAN [Concomitant]
     Dosage: 5 MG, QD
     Route: 048
     Dates: start: 20100315
  7. METFORMIN HCL [Concomitant]
     Indication: DIABETES MELLITUS
     Dosage: 850 MG, QD
     Route: 048
     Dates: start: 20100315

REACTIONS (2)
  - SYNCOPE [None]
  - CONVULSION [None]
